FAERS Safety Report 6910217-X (Version None)
Quarter: 2010Q3

REPORT INFORMATION
  Report Type: 
  Country: None (occurrence: None)
  Receive Date: 20100806
  Receipt Date: 20100727
  Transmission Date: 20110219
  Serious: Yes (Hospitalization)
  Sender: FDA-Public Use
  Company Number: US-ABBOTT-10P-163-0660385-00

PATIENT
  Sex: Male
  Weight: 68.1 kg

DRUGS (9)
  1. HUMIRA [Suspect]
     Indication: RHEUMATOID ARTHRITIS
     Dates: start: 20070101, end: 20100701
  2. HUMIRA [Suspect]
     Indication: ANKYLOSING SPONDYLITIS
     Dates: start: 20100727
  3. INDOCIN [Concomitant]
     Indication: RHEUMATOID ARTHRITIS
  4. PREDNISONE [Concomitant]
     Indication: PRODUCT USED FOR UNKNOWN INDICATION
  5. PERCOCET [Concomitant]
     Indication: PRODUCT USED FOR UNKNOWN INDICATION
  6. EFFEXOR [Concomitant]
     Indication: DEPRESSION
  7. NEURONTIN [Concomitant]
     Indication: NEUROPATHY PERIPHERAL
  8. TOPROL-XL [Concomitant]
     Indication: HYPERTENSION
  9. DURAGESIC-100 [Concomitant]
     Indication: PRODUCT USED FOR UNKNOWN INDICATION

REACTIONS (7)
  - ABDOMINAL PAIN UPPER [None]
  - BACK PAIN [None]
  - DIARRHOEA [None]
  - FULL BLOOD COUNT DECREASED [None]
  - GASTRIC INFECTION [None]
  - PANCREATIC DISORDER [None]
  - ULCER HAEMORRHAGE [None]
